FAERS Safety Report 25366715 (Version 1)
Quarter: 2025Q2

REPORT INFORMATION
  Report Type: Spontaneous
  Country: US (occurrence: US)
  Receive Date: 20250528
  Receipt Date: 20250528
  Transmission Date: 20250717
  Serious: Yes (Other)
  Sender: COOPERSURGICAL
  Company Number: US-COOPERSURGICAL, INC.-2025CPS004162

PATIENT
  Age: 44 Year
  Sex: Female
  Weight: 58.957 kg

DRUGS (2)
  1. PARAGARD T 380A [Suspect]
     Active Substance: COPPER
     Indication: Contraception
     Route: 015
     Dates: start: 20120613
  2. LISINOPRIL [Concomitant]
     Active Substance: LISINOPRIL
     Dates: start: 202101

REACTIONS (13)
  - Uterine leiomyoma [Unknown]
  - Device breakage [Recovered/Resolved]
  - Foreign body in reproductive tract [Recovered/Resolved]
  - Complication of device removal [Recovered/Resolved]
  - Embedded device [Recovered/Resolved]
  - Abortion spontaneous [Recovered/Resolved]
  - Pregnancy with contraceptive device [Recovered/Resolved]
  - Drug ineffective [Unknown]
  - Fear [Recovered/Resolved]
  - Emotional disorder [Unknown]
  - Device dislocation [Recovered/Resolved]
  - Pain [Not Recovered/Not Resolved]
  - Abnormal uterine bleeding [Unknown]

NARRATIVE: CASE EVENT DATE: 20200101
